FAERS Safety Report 25458384 (Version 1)
Quarter: 2025Q2

REPORT INFORMATION
  Report Type: Spontaneous
  Country: NL (occurrence: NL)
  Receive Date: 20250620
  Receipt Date: 20250620
  Transmission Date: 20250716
  Serious: Yes (Other)
  Sender: TOLMAR
  Company Number: NL-Tolmar-TLM-2025-03687

PATIENT
  Age: 46 Year

DRUGS (1)
  1. TESTOSTERONE UNDECANOATE [Suspect]
     Active Substance: TESTOSTERONE UNDECANOATE
     Indication: Hormone replacement therapy
     Dates: start: 1980

REACTIONS (1)
  - Serous cystadenocarcinoma ovary [Unknown]
